FAERS Safety Report 6904144-1 (Version None)
Quarter: 2010Q3

REPORT INFORMATION
  Report Type: 
  Country: None (occurrence: None)
  Receive Date: 20100804
  Receipt Date: 20090324
  Transmission Date: 20110219
  Serious: No
  Sender: FDA-Public Use
  Company Number: US-PFIZER INC-2009152426

PATIENT
  Sex: Female
  Weight: 86.2 kg

DRUGS (4)
  1. LYRICA [Suspect]
     Indication: PAIN
     Dosage: 50 MG, 2X/DAY
     Dates: start: 20080101
  2. LYRICA [Suspect]
     Indication: FIBROMYALGIA
  3. VICODIN [Concomitant]
     Dates: end: 20090104
  4. RELAFEN [Concomitant]
     Dosage: UNK

REACTIONS (1)
  - DRUG SCREEN FALSE POSITIVE [None]
